FAERS Safety Report 5491498-9 (Version None)
Quarter: 2007Q4

REPORT INFORMATION
  Report Type: 
  Country: None (occurrence: None)
  Receive Date: 20071022
  Receipt Date: 20071015
  Transmission Date: 20080405
  Serious: Yes (Other)
  Sender: FDA-Public Use
  Company Number: PHEH2007US12897

PATIENT
  Age: 37 Year
  Sex: Female

DRUGS (6)
  1. ZOMETA [Suspect]
     Indication: METASTASES TO BONE
     Dosage: UNK, QMO
  2. ZOMETA [Suspect]
     Dosage: EVERY 60 DAYS
  3. ZOMETA [Suspect]
     Dosage: EVERY 90 DAYS
  4. ESTRADIOL [Concomitant]
     Indication: HORMONE REPLACEMENT THERAPY
     Dosage: 1 MG, UNK
  5. NEURONTIN [Concomitant]
     Dosage: 100 MG, TID
  6. CALCIUM [Concomitant]

REACTIONS (7)
  - CALLUS FORMATION DELAYED [None]
  - HAND FRACTURE [None]
  - ILEUS [None]
  - IMPAIRED HEALING [None]
  - MALIGNANT NEOPLASM PROGRESSION [None]
  - WHITE BLOOD CELL COUNT DECREASED [None]
  - X-RAY ABNORMAL [None]
